FAERS Safety Report 4922083-2 (Version None)
Quarter: 2006Q1

REPORT INFORMATION
  Report Type: 
  Country: None (occurrence: None)
  Receive Date: 20060224
  Receipt Date: 20060213
  Transmission Date: 20060701
  Serious: Yes (Hospitalization)
  Sender: FDA-Public Use
  Company Number: US-AMGEN-US168615

PATIENT
  Sex: Male

DRUGS (4)
  1. NEULASTA - PREFILLED SYRINGE [Suspect]
     Indication: CHEMOTHERAPY
     Route: 058
     Dates: start: 20060207
  2. ARANESP [Suspect]
     Indication: ANAEMIA OF MALIGNANT DISEASE
     Route: 058
     Dates: start: 20060206
  3. CLADRIBINE [Concomitant]
     Dates: start: 20060130, end: 20060206
  4. ANTIBIOTICS [Concomitant]
     Dates: start: 20060201

REACTIONS (2)
  - RASH MACULAR [None]
  - RASH PRURITIC [None]
